FAERS Safety Report 15449688 (Version 1)
Quarter: 2018Q4

REPORT INFORMATION
  Report Type: Spontaneous
  Country: US (occurrence: US)
  Receive Date: 20181001
  Receipt Date: 20181001
  Transmission Date: 20190204
  Serious: No
  Sender: FDA-Public Use
  Company Number: US-BIOGEN-2018BI00603982

PATIENT
  Sex: Female

DRUGS (1)
  1. TECFIDERA [Suspect]
     Active Substance: DIMETHYL FUMARATE
     Indication: MULTIPLE SCLEROSIS
     Dosage: TAKE ONE CAPSULE (240 MG) BY MOUTH TWICE A DAY.
     Route: 048

REACTIONS (5)
  - Musculoskeletal stiffness [Unknown]
  - Depression [Unknown]
  - Arthralgia [Unknown]
  - Limb discomfort [Unknown]
  - Gait disturbance [Unknown]
